FAERS Safety Report 8860001 (Version 2)
Quarter: 2012Q4

REPORT INFORMATION
  Report Type: 
  Country: AU (occurrence: AU)
  Receive Date: 20121025
  Receipt Date: 20121102
  Transmission Date: 20130627
  Serious: Yes (Other)
  Sender: FDA-Public Use
  Company Number: AU-PFIZER INC-2012261115

PATIENT
  Age: 87 Year
  Sex: Male

DRUGS (1)
  1. XANAX [Suspect]
     Dosage: two 500mcg a day, one before bed and one about four hours later
     Dates: start: 1983

REACTIONS (6)
  - Drug dependence [Unknown]
  - Euphoric mood [Unknown]
  - Amnesia [Unknown]
  - Insomnia [Unknown]
  - Malaise [Unknown]
  - Incorrect drug administration duration [Unknown]
